FAERS Safety Report 10827340 (Version 2)
Quarter: 2015Q1

REPORT INFORMATION
  Report Type: Spontaneous
  Country: FR (occurrence: FR)
  Receive Date: 20150219
  Receipt Date: 20150304
  Transmission Date: 20150721
  Serious: Yes (Other)
  Sender: FDA-Public Use
  Company Number: FR-ABBVIE-15K-056-1347497-00

PATIENT
  Sex: Male
  Weight: 71 kg

DRUGS (1)
  1. HUMIRA [Suspect]
     Active Substance: ADALIMUMAB
     Indication: COLITIS
     Route: 058
     Dates: start: 20120707

REACTIONS (3)
  - Hyperhidrosis [Unknown]
  - Infertility [Unknown]
  - Memory impairment [Unknown]
